FAERS Safety Report 16138538 (Version 1)
Quarter: 2019Q1

REPORT INFORMATION
  Report Type: Spontaneous
  Country: US (occurrence: US)
  Receive Date: 20190330
  Receipt Date: 20190330
  Transmission Date: 20190418
  Serious: Yes (Other)
  Sender: FDA-Public Use
  Company Number: US-HETERO CORPORATE-HET2019US00366

PATIENT
  Age: 53 Year
  Sex: Female

DRUGS (4)
  1. WARFARIN [Suspect]
     Active Substance: WARFARIN
     Indication: MITRAL VALVE DISEASE
     Dosage: UNK
     Route: 065
  2. TOPIRAMATE ACCORD [Concomitant]
     Active Substance: TOPIRAMATE
     Indication: HEADACHE
     Dosage: UNK
     Route: 065
  3. DULOXETINE                         /01749302/ [Concomitant]
     Active Substance: DULOXETINE
     Indication: ANXIETY
     Dosage: UNK
     Route: 065
  4. FENOFIBRATE. [Suspect]
     Active Substance: FENOFIBRATE
     Indication: HYPERLIPIDAEMIA
     Dosage: UNK
     Route: 065

REACTIONS (2)
  - Potentiating drug interaction [Unknown]
  - International normalised ratio increased [Recovered/Resolved]
